FAERS Safety Report 26056164 (Version 1)
Quarter: 2025Q4

REPORT INFORMATION
  Report Type: Report from Study
  Country: ZA (occurrence: ZA)
  Receive Date: 20251118
  Receipt Date: 20251118
  Transmission Date: 20260117
  Serious: Yes (Other)
  Sender: ROCHE
  Company Number: ZA-ROCHE-10000028927

PATIENT
  Sex: Female

DRUGS (3)
  1. OCREVUS [Suspect]
     Active Substance: OCRELIZUMAB
     Indication: Relapsing-remitting multiple sclerosis
     Dosage: THEREAFTER 600MG EVERY 6 MONTHS
     Route: 042
     Dates: start: 20220201
  2. OCREVUS [Suspect]
     Active Substance: OCRELIZUMAB
     Dosage: THEREAFTER 600MG EVERY 6 MONTHS
     Route: 042
     Dates: start: 20220201
  3. OCREVUS [Suspect]
     Active Substance: OCRELIZUMAB
     Dosage: THEREAFTER 600MG EVERY 6 MONTHS
     Route: 042
     Dates: start: 20220101

REACTIONS (2)
  - Multiple sclerosis [Unknown]
  - Tremor [Unknown]
